FAERS Safety Report 12882325 (Version 2)
Quarter: 2016Q4

REPORT INFORMATION
  Report Type: Report from Study
  Country: BR (occurrence: BR)
  Receive Date: 20161025
  Receipt Date: 20161028
  Transmission Date: 20170207
  Serious: Yes (Other)
  Sender: FDA-Public Use
  Company Number: PHHY2016BR145540

PATIENT
  Sex: Female
  Weight: 50 kg

DRUGS (1)
  1. FORASEQ [Suspect]
     Active Substance: BUDESONIDE\FORMOTEROL FUMARATE
     Indication: ASTHMA
     Dosage: 2 DF (FORMOTEROL FUMARATE UNK, BUDESONIDE 400MCG), (2 CAPSULES IN THE MORNING AND 2 AT NIGHT)
     Route: 055

REACTIONS (5)
  - Asthma [Unknown]
  - Drug intolerance [Unknown]
  - Influenza [Unknown]
  - Pyrexia [Unknown]
  - Pneumonia [Unknown]
